FAERS Safety Report 8207652-9 (Version None)
Quarter: 2012Q1

REPORT INFORMATION
  Report Type: 
  Country: None (occurrence: None)
  Receive Date: 20120314
  Receipt Date: 20120314
  Transmission Date: 20120608
  Serious: Yes (Other)
  Sender: FDA-Public Use
  Company Number: None

PATIENT
  Age: 50 Year
  Sex: Female
  Weight: 99.79 kg

DRUGS (5)
  1. MELOXICAM [Concomitant]
  2. LISINOPRIL AND HYDROCHLOROTHIAZIDE [Concomitant]
  3. PROAIR HFA [Concomitant]
  4. CYMBALTA [Suspect]
     Indication: FIBROMYALGIA
     Dosage: 60.0 MG
     Route: 048
     Dates: start: 20110615, end: 20120123
  5. ASMANEX TWISTHALER [Concomitant]

REACTIONS (17)
  - SOMNOLENCE [None]
  - VOMITING [None]
  - DIARRHOEA [None]
  - NIGHTMARE [None]
  - NAUSEA [None]
  - FIBROMYALGIA [None]
  - HEADACHE [None]
  - LOSS OF CONSCIOUSNESS [None]
  - GAIT DISTURBANCE [None]
  - MOOD SWINGS [None]
  - ASTHMA [None]
  - AMNESIA [None]
  - ELECTRIC SHOCK [None]
  - DIZZINESS [None]
  - EATING DISORDER [None]
  - PARTIAL SEIZURES [None]
  - DEPRESSION [None]
